FAERS Safety Report 8205069-4 (Version None)
Quarter: 2012Q1

REPORT INFORMATION
  Report Type: 
  Country: None (occurrence: None)
  Receive Date: 20120313
  Receipt Date: 20120309
  Transmission Date: 20120608
  Serious: Yes (Other)
  Sender: FDA-Public Use
  Company Number: FR-ROCHE-1035438

PATIENT
  Age: 60 Year
  Sex: Female

DRUGS (4)
  1. XELODA [Suspect]
     Indication: GASTROINTESTINAL CARCINOMA
  2. EBASTINE [Concomitant]
  3. TRAVATAN [Concomitant]
     Indication: GLAUCOMA
     Route: 047
  4. AZOPT [Concomitant]
     Indication: GLAUCOMA
     Route: 047

REACTIONS (3)
  - CATARACT [None]
  - MYOPIA [None]
  - VISUAL ACUITY REDUCED [None]
